FAERS Safety Report 8439068-4 (Version None)
Quarter: 2012Q2

REPORT INFORMATION
  Report Type: 
  Country: None (occurrence: None)
  Receive Date: 20120615
  Receipt Date: 20120604
  Transmission Date: 20120825
  Serious: Yes (Death, Other)
  Sender: FDA-Public Use
  Company Number: HR-MPIJNJ-2012-02008

PATIENT

DRUGS (9)
  1. VELCADE [Suspect]
     Indication: MULTIPLE MYELOMA
     Dosage: 1.3 MG/M2, UNK
     Route: 042
     Dates: start: 20111201
  2. NITROLINGUAL [Concomitant]
  3. ALLOPURINOL [Concomitant]
     Dosage: 100 MG, UNK
  4. GLUCOPHAGE [Concomitant]
     Dosage: 100 MG, UNK
  5. LIPEX                              /00848101/ [Concomitant]
     Dosage: 20 MG, UNK
  6. PIGREL [Concomitant]
  7. INDAPAMIDE [Concomitant]
  8. SERETIDE                           /01420901/ [Concomitant]
     Dosage: 250 MG, UNK
  9. TRITACE [Concomitant]
     Dosage: 2.5 MG, UNK

REACTIONS (3)
  - DECREASED APPETITE [None]
  - CORONARY ARTERY DISEASE [None]
  - PERIPHERAL SENSORY NEUROPATHY [None]
